FAERS Safety Report 6231258-4 (Version None)
Quarter: 2009Q2

REPORT INFORMATION
  Report Type: 
  Country: None (occurrence: None)
  Receive Date: 20090616
  Receipt Date: 20090601
  Transmission Date: 20091009
  Serious: Yes (Disabling, Other)
  Sender: FDA-Public Use
  Company Number: JP-AMGEN-US345215

PATIENT
  Sex: Female
  Weight: 57 kg

DRUGS (6)
  1. ENBREL [Suspect]
     Indication: RHEUMATOID ARTHRITIS
     Route: 058
     Dates: start: 20061016
  2. MEDROL [Suspect]
     Indication: RHEUMATOID ARTHRITIS
     Route: 048
     Dates: start: 19981201, end: 20000601
  3. PREDONINE [Suspect]
     Indication: RHEUMATOID ARTHRITIS
     Route: 048
     Dates: start: 20000601
  4. SODIUM AUROTHIOMALATE [Concomitant]
     Route: 030
     Dates: start: 19920301, end: 19970401
  5. SODIUM AUROTHIOMALATE [Concomitant]
     Route: 030
     Dates: start: 19980501
  6. SALAZOSULFAPYRIDINE [Concomitant]
     Route: 065
     Dates: start: 20010101

REACTIONS (4)
  - CONDITION AGGRAVATED [None]
  - DIABETES MELLITUS [None]
  - DIPLEGIA [None]
  - SPINAL COMPRESSION FRACTURE [None]
